FAERS Safety Report 16991030 (Version 1)
Quarter: 2019Q4

REPORT INFORMATION
  Report Type: Spontaneous
  Country: US (occurrence: US)
  Receive Date: 20191104
  Receipt Date: 20191104
  Transmission Date: 20200122
  Serious: Yes (Hospitalization)
  Sender: FDA-Public Use
  Company Number: US-THE RITEDOSE CORPORATION-2019RIT000301

PATIENT

DRUGS (1)
  1. ALBUTEROL SULFATE INHALATION SOLUTION [Suspect]
     Active Substance: ALBUTEROL SULFATE
     Indication: CHRONIC OBSTRUCTIVE PULMONARY DISEASE
     Dosage: 1 VIAL, EVERY 4-6 HOURS AS NEEDED
     Route: 055

REACTIONS (4)
  - Product use in unapproved indication [Unknown]
  - Colon cancer [Unknown]
  - Expired product administered [Unknown]
  - Hernia repair [Unknown]

NARRATIVE: CASE EVENT DATE: 201812
